FAERS Safety Report 5352950-X (Version None)
Quarter: 2007Q2

REPORT INFORMATION
  Report Type: 
  Country: None (occurrence: None)
  Receive Date: 20070611
  Receipt Date: 20070530
  Transmission Date: 20071010
  Serious: Yes (Hospitalization)
  Sender: FDA-Public Use
  Company Number: JP-AMGEN-US228445

PATIENT
  Age: 67 Year
  Sex: Female

DRUGS (7)
  1. ENBREL [Suspect]
     Indication: RHEUMATOID ARTHRITIS
     Route: 058
     Dates: start: 20070518, end: 20070522
  2. PREDONINE [Concomitant]
  3. MARZULENE [Concomitant]
  4. ISCOTIN [Concomitant]
  5. EVISTA [Concomitant]
  6. RHEUMATREX [Concomitant]
  7. PARIET [Concomitant]

REACTIONS (1)
  - SUBCUTANEOUS NODULE [None]
